FAERS Safety Report 9235433 (Version 1)
Quarter: 2013Q2

REPORT INFORMATION
  Report Type: Spontaneous
  Country: US (occurrence: None)
  Receive Date: 20130416
  Receipt Date: 20130416
  Transmission Date: 20140414
  Serious: Yes (Death)
  Sender: FDA-Public Use
  Company Number: None

PATIENT
  Age: 54 Year
  Sex: Male
  Weight: 86.18 kg

DRUGS (2)
  1. TRAMADOL [Suspect]
     Indication: PAIN
     Dosage: 1 TO 2 TABLETS, 4X A DAY AS NEEDED ORAL
     Route: 048
  2. CYCLOBENAPRINE HYDROCHLORIDE [Suspect]
     Indication: DRUG THERAPY
     Route: 048

REACTIONS (8)
  - Serotonin syndrome [None]
  - Hypertension [None]
  - Cold sweat [None]
  - Insomnia [None]
  - Emotional disorder [None]
  - Fall [None]
  - Intentional self-injury [None]
  - Head injury [None]
